FAERS Safety Report 4502961-9 (Version None)
Quarter: 2004Q4

REPORT INFORMATION
  Report Type: 
  Country: None (occurrence: None)
  Receive Date: 20041116
  Receipt Date: 20041116
  Transmission Date: 20050328
  Serious: No
  Sender: FDA-Public Use
  Company Number: None

PATIENT
  Age: 46 Year
  Sex: Female
  Weight: 82.1011 kg

DRUGS (5)
  1. ENFURVIRTIDE  90 MG [Suspect]
     Indication: HIV INFECTION
     Dosage: 90 MG BID SUBCUTANEOUS
     Route: 058
     Dates: start: 20040526, end: 20040608
  2. VIREAD [Concomitant]
  3. EMTRIVA [Concomitant]
  4. SEPTRA [Concomitant]
  5. HYDROCHLOROTHIAZIDE [Concomitant]

REACTIONS (7)
  - BLISTER [None]
  - ERYTHEMA [None]
  - INJECTION SITE NODULE [None]
  - INJECTION SITE RASH [None]
  - PYREXIA [None]
  - RASH MACULO-PAPULAR [None]
  - TRANSAMINASES INCREASED [None]
